FAERS Safety Report 6968855-4 (Version None)
Quarter: 2010Q3

REPORT INFORMATION
  Report Type: 
  Country: None (occurrence: None)
  Receive Date: 20100907
  Receipt Date: 20100826
  Transmission Date: 20110219
  Serious: Yes (Death, Other)
  Sender: FDA-Public Use
  Company Number: CN-MPIJNJ-2010-04580

PATIENT

DRUGS (5)
  1. VELCADE [Suspect]
     Indication: MULTIPLE MYELOMA
     Dosage: 1.3 MG/M2, CYCLIC
     Route: 042
  2. VINCRISTINE [Suspect]
     Indication: MULTIPLE MYELOMA
  3. ADRIAMYCIN PFS [Suspect]
     Indication: MULTIPLE MYELOMA
  4. DEXAMETHASONE [Suspect]
     Indication: MULTIPLE MYELOMA
     Dosage: 40 MG, CYCLIC
     Route: 048
  5. THALIDOMIDE [Suspect]
     Indication: MULTIPLE MYELOMA
     Dosage: 200 MG, CYCLIC

REACTIONS (2)
  - MYELOMA RECURRENCE [None]
  - PLASMACYTOMA [None]
